FAERS Safety Report 16945553 (Version 2)
Quarter: 2019Q4

REPORT INFORMATION
  Report Type: Spontaneous
  Country: FR (occurrence: FR)
  Receive Date: 20191022
  Receipt Date: 20191025
  Transmission Date: 20200122
  Serious: Yes (Life-Threatening)
  Sender: FDA-Public Use
  Company Number: FR-PFIZER INC-2019451677

PATIENT

DRUGS (1)
  1. PROSTINE E2 [Suspect]
     Active Substance: DINOPROSTONE
     Indication: DELIVERY
     Dosage: 2 MG / 3G
     Route: 064
     Dates: start: 20190923

REACTIONS (2)
  - Bradycardia foetal [Unknown]
  - Foetal exposure during delivery [Unknown]

NARRATIVE: CASE EVENT DATE: 20190923
